FAERS Safety Report 6076457-X (Version None)
Quarter: 2009Q1

REPORT INFORMATION
  Report Type: 
  Country: None (occurrence: None)
  Receive Date: 20090213
  Receipt Date: 20090209
  Transmission Date: 20090719
  Serious: Yes (Death, Hospitalization, Other)
  Sender: FDA-Public Use
  Company Number: US-CELGENEUS-163-20785-08120133

PATIENT
  Sex: Male

DRUGS (1)
  1. THALOMID [Suspect]
     Indication: MULTIPLE MYELOMA
     Route: 048
     Dates: start: 20081030

REACTIONS (5)
  - BLOOD COUNT ABNORMAL [None]
  - BRONCHOPULMONARY ASPERGILLOSIS [None]
  - DEATH [None]
  - LEUKAEMIA PLASMACYTIC [None]
  - NEUTROPENIA [None]
